FAERS Safety Report 20067978 (Version 1)
Quarter: 2021Q4

REPORT INFORMATION
  Report Type: Spontaneous
  Country: US (occurrence: None)
  Receive Date: 20211112
  Receipt Date: 20211112
  Transmission Date: 20220303
  Serious: Yes (Hospitalization)
  Sender: FDA-Public Use
  Company Number: None

PATIENT
  Sex: Female

DRUGS (12)
  1. BOTOX [Suspect]
     Active Substance: ONABOTULINUMTOXINA
     Indication: Toxicity to various agents
     Dosage: OTHER FREQUENCY : EVERY3MONTHS ;?
     Route: 058
     Dates: start: 20160113
  2. ABILIFY [Concomitant]
  3. ADVAIR HFA [Concomitant]
     Active Substance: FLUTICASONE PROPIONATE\SALMETEROL XINAFOATE
  4. BACLOFEN [Concomitant]
     Active Substance: BACLOFEN
  5. HYDROXYZINE [Concomitant]
     Active Substance: HYDROXYZINE HYDROCHLORIDE
  6. LAMICTAL [Concomitant]
     Active Substance: LAMOTRIGINE
  7. LISINOPRIL [Concomitant]
     Active Substance: LISINOPRIL
  8. MEDROXPR [Concomitant]
  9. OMEPRAZOLE [Concomitant]
     Active Substance: OMEPRAZOLE
  10. PROPRANOLOL [Concomitant]
     Active Substance: PROPRANOLOL HYDROCHLORIDE
  11. RIZATRIPTAN [Concomitant]
     Active Substance: RIZATRIPTAN
  12. TEGRETOL XR [Concomitant]
     Active Substance: CARBAMAZEPINE

REACTIONS (1)
  - Concussion [None]
